FAERS Safety Report 7911855-8 (Version None)
Quarter: 2011Q4

REPORT INFORMATION
  Report Type: 
  Country: None (occurrence: None)
  Receive Date: 20111114
  Receipt Date: 20111110
  Transmission Date: 20120403
  Serious: Yes (Life-Threatening, Hospitalization)
  Sender: FDA-Public Use
  Company Number: GB-ROCHE-1010165

PATIENT
  Sex: Female
  Weight: 59 kg

DRUGS (3)
  1. TAMOXIFEN CITRATE [Concomitant]
     Route: 048
  2. HERCEPTIN [Suspect]
     Indication: BREAST CANCER
     Route: 042
     Dates: start: 20110105
  3. CODEINE SUL TAB [Concomitant]
     Route: 048

REACTIONS (1)
  - GASTRIC ULCER PERFORATION [None]
